FAERS Safety Report 18980049 (Version 1)
Quarter: 2021Q1

REPORT INFORMATION
  Report Type: Report from Study
  Country: US (occurrence: US)
  Receive Date: 20210308
  Receipt Date: 20210308
  Transmission Date: 20210420
  Serious: No
  Sender: FDA-Public Use
  Company Number: NVSC2021US035534

PATIENT
  Sex: Female

DRUGS (2)
  1. ILARIS [Suspect]
     Active Substance: CANAKINUMAB
     Indication: COLD URTICARIA
     Dosage: 150 MG, EVERY 8 WEEKS
     Route: 058
     Dates: start: 20191220
  2. ILARIS [Suspect]
     Active Substance: CANAKINUMAB
     Indication: URTICARIA THERMAL
     Dosage: UNK
     Route: 065
     Dates: start: 20210203

REACTIONS (2)
  - Inappropriate schedule of product administration [Unknown]
  - Product use in unapproved indication [Unknown]
